FAERS Safety Report 7012913-5 (Version None)
Quarter: 2010Q3

REPORT INFORMATION
  Report Type: 
  Country: None (occurrence: None)
  Receive Date: 20100924
  Receipt Date: 20100913
  Transmission Date: 20110219
  Serious: Yes (Other)
  Sender: FDA-Public Use
  Company Number: US-PFIZER INC-2010115685

PATIENT
  Sex: Female

DRUGS (3)
  1. XANAX [Suspect]
     Indication: PANIC DISORDER WITH AGORAPHOBIA
     Dosage: 3 MG, DAILY
     Route: 048
     Dates: start: 20100801, end: 20100824
  2. LAMICTAL [Concomitant]
     Indication: DEPRESSION
     Dosage: 150 MG, DAILY
     Route: 048
     Dates: start: 20050101
  3. DEPAKOTE [Concomitant]
     Indication: BIPOLAR DISORDER
     Dosage: 500 MG, DAILY
     Route: 048
     Dates: start: 19880101

REACTIONS (8)
  - BALANCE DISORDER [None]
  - COORDINATION ABNORMAL [None]
  - DIZZINESS [None]
  - DRY MOUTH [None]
  - FATIGUE [None]
  - HYPERSOMNIA [None]
  - PANIC REACTION [None]
  - SOMNOLENCE [None]
